FAERS Safety Report 19213749 (Version 3)
Quarter: 2021Q2

REPORT INFORMATION
  Report Type: Spontaneous
  Country: BR (occurrence: BR)
  Receive Date: 20210505
  Receipt Date: 20210517
  Transmission Date: 20210717
  Serious: Yes (Other)
  Sender: FDA-Public Use
  Company Number: BR-CELLTRION INC.-2021BR005771

PATIENT

DRUGS (5)
  1. REMSIMA [Suspect]
     Active Substance: INFLIXIMAB
     Dosage: 4 AMPOULES EVERY 8 WEEKS VIA ENDOVENOUS ROUTE
     Route: 042
     Dates: start: 20210122
  2. REMSIMA [Suspect]
     Active Substance: INFLIXIMAB
     Dosage: 4 AMPOULES EVERY 8 WEEKS VIA ENDOVENOUS ROUTE
     Route: 042
     Dates: start: 20210505
  3. REMSIMA [Suspect]
     Active Substance: INFLIXIMAB
     Indication: COLITIS ULCERATIVE
     Dosage: MORE OR LESS 2 YEARS AGO
  4. AZATHIOPRINE. [Concomitant]
     Active Substance: AZATHIOPRINE
     Indication: COLITIS ULCERATIVE
     Dosage: 4 TABLETS EACH 8 HOURS OF AZATHIOPRINE 50MG
     Route: 048
     Dates: start: 2013
  5. COVID?19 VACCINE NOS. [Concomitant]
     Active Substance: COVID-19 VACCINE NOS
     Dosage: FIRST DOSE
     Dates: start: 20210503

REACTIONS (3)
  - Diarrhoea [Recovered/Resolved]
  - Product dose omission issue [Unknown]
  - Abdominal pain [Recovered/Resolved]

NARRATIVE: CASE EVENT DATE: 20210425
